FAERS Safety Report 15174269 (Version 2)
Quarter: 2018Q3

REPORT INFORMATION
  Report Type: Report from Study
  Country: US (occurrence: US)
  Receive Date: 20180720
  Receipt Date: 20180725
  Transmission Date: 20181010
  Serious: Yes (Disabling)
  Sender: FDA-Public Use
  Company Number: US-ALLERGAN-1835889US

PATIENT
  Age: 43 Year
  Sex: Female

DRUGS (1)
  1. BOTULINUM TOXIN TYPE A ? GENERAL (9060X) [Suspect]
     Active Substance: BOTULINUM TOXIN TYPE A
     Indication: MIGRAINE
     Dosage: UNK, SINGLE
     Route: 030

REACTIONS (4)
  - Speech disorder [Unknown]
  - Migraine [Unknown]
  - Weight decreased [Unknown]
  - Alopecia [Unknown]
